FAERS Safety Report 6458979-2 (Version None)
Quarter: 2009Q4

REPORT INFORMATION
  Report Type: 
  Country: None (occurrence: None)
  Receive Date: 20091125
  Receipt Date: 20091125
  Transmission Date: 20100525
  Serious: Yes (Hospitalization)
  Sender: FDA-Public Use
  Company Number: None

PATIENT
  Sex: Female
  Weight: 61.6892 kg

DRUGS (11)
  1. PREDNISONE [Suspect]
     Indication: SINUSITIS
     Dosage: 20 MIL 2X/DAY 2X DAY ORAL
     Route: 048
     Dates: start: 20090518, end: 20090522
  2. ATENOLOL [Concomitant]
  3. CLONAZEPAM [Concomitant]
  4. ZOLOFT [Concomitant]
  5. IMIPRAMINE [Concomitant]
  6. LEVOTHROID [Concomitant]
  7. POTASSIUM CHLOR. [Concomitant]
  8. AVAPRO [Concomitant]
  9. TIMOLOL [Concomitant]
  10. RANITIDINE [Concomitant]
  11. AZITHROMYCIN [Concomitant]

REACTIONS (4)
  - CEREBRAL THROMBOSIS [None]
  - CEREBROVASCULAR ACCIDENT [None]
  - CONFUSIONAL STATE [None]
  - HALLUCINATION [None]
